FAERS Safety Report 9169274 (Version 3)
Quarter: 2013Q2

REPORT INFORMATION
  Report Type: Spontaneous
  Country: DE (occurrence: DE)
  Receive Date: 20130318
  Receipt Date: 20130419
  Transmission Date: 20140414
  Serious: Yes (Other)
  Sender: FDA-Public Use
  Company Number: DE-AMGEN-DEUSP2013016600

PATIENT
  Age: 81 Year
  Sex: Female
  Weight: 55 kg

DRUGS (1)
  1. NPLATE [Suspect]
     Indication: IDIOPATHIC THROMBOCYTOPENIC PURPURA
     Dosage: 9 MUG/KG, Q2WK
     Route: 058
     Dates: start: 20111027

REACTIONS (6)
  - Angina pectoris [Unknown]
  - Hypertensive crisis [Unknown]
  - Atrial fibrillation [Unknown]
  - Vertigo [Recovered/Resolved]
  - Dry eye [Recovered/Resolved]
  - Malaise [Recovered/Resolved]
